FAERS Safety Report 9831742 (Version 2)
Quarter: 2014Q1

REPORT INFORMATION
  Report Type: Spontaneous
  Country: US (occurrence: US)
  Receive Date: 20140121
  Receipt Date: 20140121
  Transmission Date: 20141002
  Serious: No
  Sender: FDA-Public Use
  Company Number: US-PFIZER INC-2013052315

PATIENT
  Sex: Female

DRUGS (4)
  1. ENBREL [Suspect]
     Dosage: UNK
  2. METHOTREXATE SODIUM [Suspect]
     Dosage: UNK
  3. PREDNISONE [Suspect]
     Dosage: UNK
  4. ACTEMRA [Concomitant]
     Dosage: UNK

REACTIONS (2)
  - Infection [Unknown]
  - Malaise [Unknown]
